FAERS Safety Report 8409763-1 (Version None)
Quarter: 2012Q2

REPORT INFORMATION
  Report Type: 
  Country: None (occurrence: None)
  Receive Date: 20120323
  Receipt Date: 20110204
  Transmission Date: 20120825
  Serious: Yes (Other)
  Sender: FDA-Public Use
  Company Number: 163-21880-11020997

PATIENT
  Age: 65 Year
  Sex: Female

DRUGS (14)
  1. BUPROPION HCL [Concomitant]
  2. NABUMETONE [Concomitant]
  3. DEXAMETHASONE [Concomitant]
  4. GABAPENTIN [Concomitant]
  5. ZOLPIDEM [Concomitant]
  6. COMBIVENT [Concomitant]
  7. REVLIMID [Suspect]
     Indication: MULTIPLE MYELOMA
     Dosage: 25 MG, DAILY X 21 DAYS/OFF 7 DAYS, PO
     Route: 048
     Dates: start: 20100101, end: 20110101
  8. SPIRIVA [Concomitant]
  9. LORAZEPAM [Concomitant]
  10. OMEPRAZOLE [Concomitant]
  11. OXYCODONE HCL [Concomitant]
  12. ASMANEX TWISTHALER [Concomitant]
  13. NORTRIPTYLINE HCL [Concomitant]
  14. CITALOPRAM [Concomitant]

REACTIONS (1)
  - RASH GENERALISED [None]
